FAERS Safety Report 9681079 (Version 1)
Quarter: 2013Q4

REPORT INFORMATION
  Report Type: Spontaneous
  Country: IT (occurrence: IT)
  Receive Date: 20131111
  Receipt Date: 20131111
  Transmission Date: 20140711
  Serious: Yes (Hospitalization)
  Sender: FDA-Public Use
  Company Number: IT-MYLANLABS-2013S1024257

PATIENT
  Age: 78 Year
  Sex: Male

DRUGS (1)
  1. CLOPIDOGREL [Suspect]
     Indication: CORONARY ARTERY BYPASS
     Route: 048
     Dates: start: 20130921, end: 20130930

REACTIONS (3)
  - Angina pectoris [Recovered/Resolved]
  - Oedema mucosal [Recovered/Resolved]
  - Allergic oedema [Recovered/Resolved]
